FAERS Safety Report 6661041-7 (Version None)
Quarter: 2010Q1

REPORT INFORMATION
  Report Type: 
  Country: None (occurrence: None)
  Receive Date: 20100331
  Receipt Date: 20100318
  Transmission Date: 20100710
  Serious: Yes (Hospitalization)
  Sender: FDA-Public Use
  Company Number: JP-SANOFI-AVENTIS-2010SA011354

PATIENT
  Age: 62 Year
  Sex: Male
  Weight: 66 kg

DRUGS (13)
  1. OXALIPLATIN [Suspect]
     Route: 041
     Dates: start: 20090831, end: 20090831
  2. OXALIPLATIN [Suspect]
     Route: 041
     Dates: start: 20091124, end: 20091124
  3. CALCIUM LEVOFOLINATE [Suspect]
     Route: 041
     Dates: start: 20090831, end: 20090831
  4. CALCIUM LEVOFOLINATE [Suspect]
     Route: 041
     Dates: start: 20091124, end: 20091124
  5. AVASTIN [Suspect]
     Route: 041
     Dates: start: 20090831, end: 20090831
  6. AVASTIN [Suspect]
     Route: 041
     Dates: start: 20091124, end: 20091124
  7. FLUOROURACIL [Concomitant]
     Indication: COLON CANCER
     Route: 040
     Dates: start: 20090831, end: 20090831
  8. FLUOROURACIL [Concomitant]
     Route: 041
     Dates: start: 20090831, end: 20090901
  9. FLUOROURACIL [Concomitant]
     Route: 040
     Dates: start: 20091103, end: 20091103
  10. FLUOROURACIL [Concomitant]
     Route: 041
     Dates: start: 20091103, end: 20091104
  11. KYTRIL [Concomitant]
     Indication: PREMEDICATION
     Route: 041
     Dates: start: 20090831, end: 20100118
  12. DEXAMETHASONE SODIUM PHOSPHATE [Concomitant]
     Indication: PREMEDICATION
     Route: 041
     Dates: start: 20090831, end: 20100118
  13. CANDESARTAN CILEXETIL [Concomitant]
     Indication: HYPERTENSION
     Route: 048
     Dates: start: 20090831

REACTIONS (1)
  - LEUKOCYTOCLASTIC VASCULITIS [None]
